FAERS Safety Report 6016785-7 (Version None)
Quarter: 2008Q4

REPORT INFORMATION
  Report Type: 
  Country: None (occurrence: None)
  Receive Date: 20081222
  Receipt Date: 20081219
  Transmission Date: 20090506
  Serious: Yes (Death)
  Sender: FDA-Public Use
  Company Number: A0761359A

PATIENT
  Age: 69 Year
  Sex: Female
  Weight: 55.5 kg

DRUGS (1)
  1. AVANDIA [Suspect]
     Indication: TYPE 2 DIABETES MELLITUS
     Route: 048
     Dates: start: 20070301, end: 20070801

REACTIONS (4)
  - CARDIOVASCULAR DISORDER [None]
  - DEATH [None]
  - HYPERTENSION [None]
  - MYOCARDIAL INFARCTION [None]
